FAERS Safety Report 19229971 (Version 1)
Quarter: 2021Q2

REPORT INFORMATION
  Report Type: Spontaneous
  Country: US (occurrence: US)
  Receive Date: 20210506
  Receipt Date: 20210506
  Transmission Date: 20210717
  Serious: Yes (Death)
  Sender: FDA-Public Use
  Company Number: None

PATIENT
  Age: 93 Year
  Sex: Female

DRUGS (2)
  1. RAYALDEE [Concomitant]
     Active Substance: CALCIFEDIOL
     Dates: start: 20200225, end: 20210408
  2. RAYALDEE [Suspect]
     Active Substance: CALCIFEDIOL
     Indication: HYPERPARATHYROIDISM
     Route: 048
     Dates: start: 20200225, end: 20210408

REACTIONS (1)
  - Death [None]

NARRATIVE: CASE EVENT DATE: 20210506
